FAERS Safety Report 5805647-3 (Version None)
Quarter: 2008Q3

REPORT INFORMATION
  Report Type: 
  Country: None (occurrence: None)
  Receive Date: 20080710
  Receipt Date: 20080404
  Transmission Date: 20090109
  Serious: No
  Sender: FDA-Public Use
  Company Number: A0719395A

PATIENT
  Age: 56 Year
  Sex: Female

DRUGS (2)
  1. TYKERB [Suspect]
     Indication: BREAST CANCER
     Dosage: 5TAB PER DAY
     Route: 048
     Dates: start: 20080329
  2. XELODA [Concomitant]

REACTIONS (3)
  - DIARRHOEA [None]
  - HYPOAESTHESIA [None]
  - PALPITATIONS [None]
